FAERS Safety Report 5483301-8 (Version None)
Quarter: 2007Q4

REPORT INFORMATION
  Report Type: 
  Country: None (occurrence: None)
  Receive Date: 20071012
  Receipt Date: 20071004
  Transmission Date: 20080405
  Serious: Yes (Other)
  Sender: FDA-Public Use
  Company Number: PHRM2007FR02306

PATIENT
  Sex: Female

DRUGS (2)
  1. TEGRETOL LP [Suspect]
     Indication: EPILEPSY
     Dosage: 400 MG, BID
     Route: 048
  2. SPECIAFOLDINE [Concomitant]
     Dates: start: 20060601

REACTIONS (16)
  - ABDOMINAL WALL ANOMALY [None]
  - ABORTION INDUCED [None]
  - ALPHA 1 FOETOPROTEIN INCREASED [None]
  - AMNIOCENTESIS [None]
  - CONGENITAL ANOMALY OF ADRENAL GLAND [None]
  - CONGENITAL BLADDER ANOMALY [None]
  - CONGENITAL HAND MALFORMATION [None]
  - CONGENITAL TERATOMA [None]
  - DRUG EXPOSURE DURING PREGNANCY [None]
  - DYSMORPHISM [None]
  - EXOMPHALOS [None]
  - FOETAL MALFORMATION [None]
  - LIMB HYPOPLASIA CONGENITAL [None]
  - SOFT TISSUE DISORDER [None]
  - SOLITARY KIDNEY [None]
  - SPINE MALFORMATION [None]
